FAERS Safety Report 12947577 (Version 3)
Quarter: 2017Q1

REPORT INFORMATION
  Report Type: Spontaneous
  Country: US (occurrence: US)
  Receive Date: 20161116
  Receipt Date: 20170131
  Transmission Date: 20170428
  Serious: Yes (Hospitalization, Other)
  Sender: FDA-Public Use
  Company Number: US-PFIZER INC-2016526867

PATIENT
  Age: 69 Year
  Sex: Male
  Weight: 64 kg

DRUGS (13)
  1. DILANTIN [Suspect]
     Active Substance: PHENYTOIN
     Indication: SEIZURE
     Dosage: 100 MG, 4X/DAY
     Route: 048
  2. OMEPRAZOLE. [Concomitant]
     Active Substance: OMEPRAZOLE
     Indication: ANTACID THERAPY
     Dosage: 20 MG, TWICE DAILY (AS NEEDED)
  3. DILANTIN [Suspect]
     Active Substance: PHENYTOIN
     Indication: GENERALISED TONIC-CLONIC SEIZURE
     Dosage: 200 MG, 2X/DAY
     Route: 048
     Dates: end: 20161031
  4. FINASTERIDE. [Concomitant]
     Active Substance: FINASTERIDE
     Dosage: 5 MG, DAILY
     Route: 048
  5. KEPPRA [Concomitant]
     Active Substance: LEVETIRACETAM
     Dosage: 500 MG, 1X/DAY
  6. GABAPENTIN. [Concomitant]
     Active Substance: GABAPENTIN
     Indication: NEUROPATHY PERIPHERAL
     Dosage: 600 MG, 3X/DAY
     Route: 048
  7. KEPPRA [Concomitant]
     Active Substance: LEVETIRACETAM
     Dosage: 500 MG, 2X/DAY
     Route: 048
  8. FINASTERIDE. [Concomitant]
     Active Substance: FINASTERIDE
     Indication: PROSTATIC ATROPHY
     Dosage: 5 MG, 1X/DAY
     Route: 048
  9. FLOMAX [Concomitant]
     Active Substance: TAMSULOSIN HYDROCHLORIDE
     Dosage: 0.4 MG, 1X/DAY
     Route: 048
  10. GABAPENTIN. [Concomitant]
     Active Substance: GABAPENTIN
     Dosage: 600 MG, 2X/DAY
     Route: 048
  11. ASPIRIN. [Concomitant]
     Active Substance: ASPIRIN
     Indication: ANTICOAGULANT THERAPY
     Dosage: 81 MG, 1X/DAY
     Route: 048
     Dates: start: 2007
  12. TAMSULOSIN [Concomitant]
     Active Substance: TAMSULOSIN
     Indication: PROSTATIC ATROPHY
     Dosage: 0.4 MG, 1X/DAY
     Route: 048
  13. OXYCODONE [Concomitant]
     Active Substance: OXYCODONE
     Indication: PAIN
     Dosage: 5 MG, AS NEEDED (Q. 6 HOURS AS NEEDED) (Q4H)
     Route: 048

REACTIONS (22)
  - Head injury [Unknown]
  - Rib fracture [Recovering/Resolving]
  - Dysarthria [Recovered/Resolved]
  - Rash [Recovered/Resolved]
  - Eye movement disorder [Recovered/Resolved]
  - Tremor [Recovered/Resolved]
  - Toxicity to various agents [Recovered/Resolved]
  - Anticonvulsant drug level increased [Recovered/Resolved]
  - Dyspnoea [Recovered/Resolved]
  - Yellow skin [Recovered/Resolved]
  - Belligerence [Unknown]
  - Gait disturbance [Recovering/Resolving]
  - Fall [Unknown]
  - Loss of consciousness [Unknown]
  - Dizziness [Unknown]
  - Swelling face [Recovered/Resolved]
  - Dyskinesia [Recovered/Resolved]
  - Visual acuity reduced [Recovering/Resolving]
  - Drug effect incomplete [Unknown]
  - Memory impairment [Recovering/Resolving]
  - Weight decreased [Unknown]
  - Visual impairment [Recovering/Resolving]

NARRATIVE: CASE EVENT DATE: 20161027
